FAERS Safety Report 6068860-9 (Version None)
Quarter: 2009Q1

REPORT INFORMATION
  Report Type: 
  Country: None (occurrence: None)
  Receive Date: 20090206
  Receipt Date: 20090203
  Transmission Date: 20090719
  Serious: Yes (Death)
  Sender: FDA-Public Use
  Company Number: US-CELGENEUS-163-21880-09010681

PATIENT
  Sex: Female

DRUGS (4)
  1. REVLIMID [Suspect]
     Indication: MULTIPLE MYELOMA
     Route: 048
     Dates: start: 20081001, end: 20081201
  2. REVLIMID [Suspect]
     Route: 048
     Dates: start: 20070716, end: 20070901
  3. REVLIMID [Suspect]
     Route: 048
     Dates: start: 20071012, end: 20080101
  4. REVLIMID [Suspect]
     Route: 048
     Dates: start: 20080321, end: 20080401

REACTIONS (1)
  - MULTIPLE MYELOMA [None]
